FAERS Safety Report 4603935-X (Version None)
Quarter: 2005Q1

REPORT INFORMATION
  Report Type: 
  Country: None (occurrence: None)
  Receive Date: 20050310
  Receipt Date: 20050307
  Transmission Date: 20050727
  Serious: Yes (Other)
  Sender: FDA-Public Use
  Company Number: US-GLAXOSMITHKLINE-A0548702A

PATIENT
  Age: 25 Year
  Sex: Female

DRUGS (2)
  1. COMBIVIR [Suspect]
     Indication: HIV INFECTION
     Dosage: 2TAB PER DAY
     Route: 048
  2. VIRACEPT [Suspect]
     Indication: HIV INFECTION
     Dosage: 1250MG TWICE PER DAY
     Route: 048

REACTIONS (1)
  - ABORTION SPONTANEOUS [None]
